FAERS Safety Report 25943095 (Version 1)
Quarter: 2025Q4

REPORT INFORMATION
  Report Type: Spontaneous
  Country: CN (occurrence: CN)
  Receive Date: 20251021
  Receipt Date: 20251021
  Transmission Date: 20260118
  Serious: Yes (Hospitalization)
  Sender: ALEXION PHARMACEUTICALS
  Company Number: CN-ASTRAZENECA-202510CHN013194CN

PATIENT
  Age: 48 Year
  Sex: Female
  Weight: 56 kg

DRUGS (2)
  1. OMEPRAZOLE [Suspect]
     Active Substance: OMEPRAZOLE
     Indication: Abdominal pain
     Dosage: 20 MILLIGRAM, QD
     Dates: start: 20250930, end: 20251005
  2. AMOXICILLIN [Concomitant]
     Active Substance: AMOXICILLIN
     Indication: Abdominal pain
     Dosage: 0.5 GRAM, BID
     Dates: start: 20250930, end: 20251005

REACTIONS (1)
  - Henoch-Schonlein purpura [Recovering/Resolving]

NARRATIVE: CASE EVENT DATE: 20251005
